FAERS Safety Report 19901837 (Version 1)
Quarter: 2021Q3

REPORT INFORMATION
  Report Type: Spontaneous
  Country: CN (occurrence: CN)
  Receive Date: 20210929
  Receipt Date: 20210929
  Transmission Date: 20211014
  Serious: Yes (Hospitalization)
  Sender: FDA-Public Use
  Company Number: CN-BAXTER-2021BAX026435

PATIENT
  Age: 49 Year
  Sex: Male
  Weight: 68 kg

DRUGS (24)
  1. ENDOXAN [Suspect]
     Active Substance: CYCLOPHOSPHAMIDE
     Indication: NON-HODGKIN^S LYMPHOMA
     Dosage: CYCLOPHOSPHAMIDE + 0.9% SODIUM CHLORIDE; 1 TO 7 CHEMOTHERAPY
     Route: 041
  2. 0.9% SODIUM CHLORIDE INJECTION [Suspect]
     Active Substance: SODIUM CHLORIDE
     Dosage: CYTARABINE 0.85G + 0.9% SODIUM CHLORIDE 250ML; EIGHTH CHEMOTHERAPY
     Route: 041
     Dates: start: 20210223, end: 20210227
  3. 0.9% SODIUM CHLORIDE INJECTION [Suspect]
     Active Substance: SODIUM CHLORIDE
     Dosage: 0.9% NS500ML + ETOPOSIDE 0.1G; EIGHTH CHEMOTHERAPY
     Route: 041
     Dates: start: 20210223, end: 20210227
  4. 0.9% SODIUM CHLORIDE INJECTION [Suspect]
     Active Substance: SODIUM CHLORIDE
     Dosage: 0.9% NS100ML + ETOPOSIDE 0.07G; EIGHTH CHEMOTHERAPY
     Route: 041
     Dates: start: 20210223, end: 20210227
  5. ETOPOSIDE. [Suspect]
     Active Substance: ETOPOSIDE
     Indication: NON-HODGKIN^S LYMPHOMA
     Dosage: 0.9% NS + ETOPOSIDE; 1 TO 7 CHEMOTHERAPY
     Route: 041
  6. CYTARABINE. [Suspect]
     Active Substance: CYTARABINE
     Dosage: CYTARABINE 0.85G + 0.9% SODIUM CHLORIDE 250ML; EIGHTH CHEMOTHERAPY
     Route: 041
     Dates: start: 20210223, end: 20210227
  7. RITUXIMAB. [Suspect]
     Active Substance: RITUXIMAB
     Indication: NON-HODGKIN^S LYMPHOMA
     Dosage: 0.9% NS + RITUXIMAB; 1 TO 7 CHEMOTHERAPY
     Route: 041
  8. 0.9% SODIUM CHLORIDE INJECTION [Suspect]
     Active Substance: SODIUM CHLORIDE
     Dosage: 0.9% NS500ML + RITUXIMAB 500 MG; EIGHTH CHEMOTHERAPY
     Route: 041
     Dates: start: 20210221, end: 20210221
  9. 0.9% SODIUM CHLORIDE INJECTION [Suspect]
     Active Substance: SODIUM CHLORIDE
     Dosage: 0.9% NS 250ML + RITUXIMAB 200 MG; EIGHTH CHEMOTHERAPY
     Route: 041
     Dates: start: 20210221, end: 20210221
  10. ENDOXAN [Suspect]
     Active Substance: CYCLOPHOSPHAMIDE
     Dosage: CYCLOPHOSPHAMIDE 1.7G + 0.9% SODIUM CHLORIDE 100ML; EIGHTH CHEMOTHERAPY
     Route: 041
     Dates: start: 20210223, end: 20210227
  11. 0.9% SODIUM CHLORIDE INJECTION [Suspect]
     Active Substance: SODIUM CHLORIDE
     Dosage: CYTARABINE + 0.9% SODIUM CHLORIDE; 1 TO 7 CHEMOTHERAPY
     Route: 041
  12. CARMUSTINE. [Suspect]
     Active Substance: CARMUSTINE
     Dosage: CARMUSTINE 500MG + 0.9% SODIUM CHLORIDE 250ML
     Route: 041
     Dates: start: 20210222, end: 20210222
  13. 0.9% SODIUM CHLORIDE INJECTION [Suspect]
     Active Substance: SODIUM CHLORIDE
     Dosage: 0.9% NS + ETOPOSIDE; 1 TO 7 CHEMOTHERAPY
     Route: 041
  14. 0.9% SODIUM CHLORIDE INJECTION [Suspect]
     Active Substance: SODIUM CHLORIDE
     Dosage: CARMUSTINE + 0.9% SODIUM CHLORIDE; 1 TO 7 CHEMOTHERAPY
     Route: 041
  15. 0.9% SODIUM CHLORIDE INJECTION [Suspect]
     Active Substance: SODIUM CHLORIDE
     Dosage: CYCLOPHOSPHAMIDE 1.7G + 0.9% SODIUM CHLORIDE 100ML; EIGHTH CHEMOTHERAPY
     Route: 041
     Dates: start: 20210223, end: 20210227
  16. ETOPOSIDE. [Suspect]
     Active Substance: ETOPOSIDE
     Dosage: 0.9% NS100ML + ETOPOSIDE 0.07G;  EIGHTH CHEMOTHERAPY
     Route: 041
     Dates: start: 20210223, end: 20210227
  17. CYTARABINE. [Suspect]
     Active Substance: CYTARABINE
     Indication: NON-HODGKIN^S LYMPHOMA
     Dosage: CYTARABINE + 0.9% SODIUM CHLORIDE; 1 TO 7 CHEMOTHERAPY
     Route: 041
  18. 0.9% SODIUM CHLORIDE INJECTION [Suspect]
     Active Substance: SODIUM CHLORIDE
     Indication: MEDICATION DILUTION
     Dosage: CYCLOPHOSPHAMIDE + 0.9% SODIUM CHLORIDE; 1 TO 7 CHEMOTHERAPY
     Route: 041
  19. 0.9% SODIUM CHLORIDE INJECTION [Suspect]
     Active Substance: SODIUM CHLORIDE
     Dosage: CARMUSTINE 500MG + 0.9% SODIUM CHLORIDE 250ML; EIGHTH CHEMOTHERAPY
     Route: 041
     Dates: start: 20210222, end: 20210222
  20. ETOPOSIDE. [Suspect]
     Active Substance: ETOPOSIDE
     Dosage: 0.9% NS500ML + ETOPOSIDE 0.1G; EIGHTH CHEMOTHERAPY
     Route: 041
     Dates: start: 20210223, end: 20210227
  21. 0.9% SODIUM CHLORIDE INJECTION [Suspect]
     Active Substance: SODIUM CHLORIDE
     Dosage: 0.9% NS + RITUXIMAB; 1 TO 7 CHEMOTHERAPY
     Route: 041
  22. RITUXIMAB. [Suspect]
     Active Substance: RITUXIMAB
     Dosage: 0.9% NS 250ML + RITUXIMAB 200 MG; EIGHTH CHEMOTHERAPY
     Route: 041
     Dates: start: 20210221, end: 20210221
  23. RITUXIMAB. [Suspect]
     Active Substance: RITUXIMAB
     Dosage: 0.9% NS500ML + RITUXIMAB 500 MG; EIGHTH CHEMOTHERAPY
     Route: 041
     Dates: start: 20210221, end: 20210221
  24. CARMUSTINE. [Suspect]
     Active Substance: CARMUSTINE
     Indication: NON-HODGKIN^S LYMPHOMA
     Dosage: CARMUSTINE + 0.9% SODIUM CHLORIDE; 1 TO 7 CHEMOTHERAPY
     Route: 041

REACTIONS (3)
  - Myelosuppression [Recovering/Resolving]
  - Mouth ulceration [Unknown]
  - Decreased appetite [Unknown]

NARRATIVE: CASE EVENT DATE: 20210219
